FAERS Safety Report 14590252 (Version 4)
Quarter: 2019Q3

REPORT INFORMATION
  Report Type: Spontaneous
  Country: US (occurrence: US)
  Receive Date: 20180302
  Receipt Date: 20190823
  Transmission Date: 20191004
  Serious: Yes (Hospitalization)
  Sender: FDA-Public Use
  Company Number: US-PFIZER INC-2018067000

PATIENT
  Age: 65 Year
  Sex: Female
  Weight: 149.21 kg

DRUGS (29)
  1. PREMARIN [Suspect]
     Active Substance: ESTROGENS, CONJUGATED
     Indication: BLADDER SPASM
     Dosage: 0.5 G, 2X/WEEK [0.625 MG / G; SHE IS USING 0.5 GRAMS TWO TIMES A WEEK TUESDAY AND FRIDAY AT BEDTIME)
     Dates: start: 201805
  2. KCL [Concomitant]
     Active Substance: POTASSIUM CHLORIDE
     Indication: SUPPLEMENTATION THERAPY
     Dosage: 20 MEQ, 1X/DAY (1 TAB PO QD(ONCE A DAY, W/FOOD + ATLEAST 4OZ OF H2O)
     Route: 048
     Dates: start: 20190511
  3. GUAIFENESIN. [Concomitant]
     Active Substance: GUAIFENESIN
     Indication: COUGH
     Dosage: 600 MG, 2X/DAY
     Route: 048
     Dates: start: 20190511
  4. HEPARIN [Concomitant]
     Active Substance: HEPARIN SODIUM
     Indication: THROMBOSIS PROPHYLAXIS
     Dosage: 1 ML, 2X/DAY (INJECT 1 ML (5000 UNIT) SQ Q12 HRS (EVERY 12 HRS) )
     Route: 058
     Dates: start: 20190511
  5. LANTUS [Concomitant]
     Active Substance: INSULIN GLARGINE
     Indication: DIABETES MELLITUS
     Dosage: 50 IU, 1X/DAY (50 UNITS SQ QHS (EVERY NIGHT) )
     Route: 058
     Dates: start: 20190511
  6. LORATADINE. [Concomitant]
     Active Substance: LORATADINE
     Indication: DRUG HYPERSENSITIVITY
     Dosage: 10 MG, 1X/DAY (QD (ONCE A DAY))
     Route: 048
     Dates: start: 20190511
  7. ASPIRIN [ACETYLSALICYLIC ACID] [Concomitant]
     Active Substance: ASPIRIN
     Indication: CEREBROVASCULAR ACCIDENT PROPHYLAXIS
     Dosage: 81 MG, 1X/DAY 1 TAB PO QD (ONCE A DAY, GIVE W/FOOD)
     Route: 048
     Dates: start: 20190511
  8. LASIX [Concomitant]
     Active Substance: FUROSEMIDE
     Indication: CARDIAC FAILURE CONGESTIVE
     Dosage: 80 MG, 2X/DAY
     Route: 048
     Dates: start: 20190511
  9. OXYBUTININ ACCORD [Concomitant]
     Indication: BLADDER SPASM
     Dosage: 2.5 MG, 2X/DAY
     Route: 048
     Dates: start: 20190511
  10. CARVEDILOL. [Concomitant]
     Active Substance: CARVEDILOL
     Indication: HYPERTENSION
     Dosage: 3.125 MG, 2X/DAY
     Route: 048
     Dates: start: 20190511
  11. ISOPHANE INSULIN [Concomitant]
     Active Substance: INSULIN NOS
     Indication: DIABETES MELLITUS
     Dosage: 15 IU, 2X/DAY (15 UNITS SQ Q12 HRS (EVERY 12 HR) )
     Route: 058
     Dates: start: 20190511
  12. PROTONIX [OMEPRAZOLE] [Concomitant]
     Active Substance: OMEPRAZOLE
     Indication: GASTROOESOPHAGEAL REFLUX DISEASE
     Dosage: 40 MG, 1X/DAY (1 TAB PO QAM (EVERY MORNING) AC BREAKFAST (BEFORE BREAKFAST) AT 6:30 A )
     Route: 048
     Dates: start: 20190511
  13. ATROVENT [Concomitant]
     Active Substance: IPRATROPIUM BROMIDE
     Indication: CHRONIC OBSTRUCTIVE PULMONARY DISEASE
     Dosage: 0.5 MG, UNK (0.5 MG 1 UD VIA HHN Q4HRS(EVERY 4 HOUR))
     Dates: start: 20190511
  14. GABAPENTIN. [Concomitant]
     Active Substance: GABAPENTIN
     Indication: NEUROPATHY PERIPHERAL
     Dosage: 300 MG, 3X/DAY
     Route: 048
     Dates: start: 20190511
  15. NORCO [Concomitant]
     Active Substance: ACETAMINOPHEN\HYDROCODONE BITARTRATE
     Indication: PAIN MANAGEMENT
     Dosage: 1 DF, UNK (5/325 MG 1 TAB PO 1 HOUR PRIOR TO PHYSICAL THERAPY )
     Route: 048
     Dates: start: 20190511
  16. LEXAPRO [Concomitant]
     Active Substance: ESCITALOPRAM OXALATE
     Indication: DEPRESSION
     Dosage: 1 DF, 1X/DAY
     Route: 048
     Dates: start: 20190511
  17. COLACE [Concomitant]
     Active Substance: DOCUSATE SODIUM
     Indication: ABDOMINAL DISCOMFORT
     Dosage: 100 MG, 2X/DAY
     Route: 048
     Dates: start: 20190511
  18. NORCO [Concomitant]
     Active Substance: ACETAMINOPHEN\HYDROCODONE BITARTRATE
     Indication: PAIN
     Dosage: UNK (NORCO 5/325 MG 1 TAB PO Q 6 HRS PRN (EVERY 6 HOURS AS NEEDED) )
  19. INSULIN ASPART [Concomitant]
     Active Substance: INSULIN ASPART
     Indication: DIABETES MELLITUS
     Dosage: 20 IU, 3X/DAY (20 UNITS SQ TID (TWICE A DAY) AC MEALS (BEFORE MEAL) )
     Route: 058
     Dates: start: 20190511
  20. PREMARIN [Suspect]
     Active Substance: ESTROGENS, CONJUGATED
     Indication: DYSURIA
     Dosage: 1 G, DAILY
     Route: 067
     Dates: start: 201801
  21. SPIRIVA [Concomitant]
     Active Substance: TIOTROPIUM BROMIDE MONOHYDRATE
     Indication: CHRONIC OBSTRUCTIVE PULMONARY DISEASE
     Dosage: 18 UG, 1X/DAY (18 MCG INH CAP ORAL INHALER QD (ONCE A DAY))
     Dates: start: 20190511
  22. ATROVENT [Concomitant]
     Active Substance: IPRATROPIUM BROMIDE
     Indication: RESPIRATORY FAILURE
  23. ADVAIR HFA [Concomitant]
     Active Substance: FLUTICASONE PROPIONATE\SALMETEROL XINAFOATE
     Indication: CHRONIC OBSTRUCTIVE PULMONARY DISEASE
     Dosage: 1 DF, 2X/DAY (500 MCG INH 1 PUFF PO BID (TWICE A DAY) )
     Dates: start: 20190511
  24. ALBUTEROL [SALBUTAMOL] [Concomitant]
     Active Substance: ALBUTEROL
     Indication: CHRONIC OBSTRUCTIVE PULMONARY DISEASE
     Dosage: UNK (2.5 MG/3 ML (0.083%) 1 UD VIA HHN Q4 HRS (EVERY 4 HOURS) )
  25. ALBUTEROL [SALBUTAMOL] [Concomitant]
     Active Substance: ALBUTEROL
     Indication: RESPIRATORY FAILURE
  26. BISACODYL. [Concomitant]
     Active Substance: BISACODYL
     Indication: CONSTIPATION
     Dosage: 10 MG, AS NEEDED (2 TABS OF 5 MG=10 MG PO QD PRN (ONCE A DAY, AS NEEDED))
     Route: 048
     Dates: start: 20190511
  27. PNEUMOCOCCAL VACCINE POLYVALENT NOS [Concomitant]
     Active Substance: PNEUMOCOCCAL VACCINE POLYVALENT
     Dosage: UNK
     Dates: start: 201710
  28. FLONASE [Concomitant]
     Active Substance: FLUTICASONE PROPIONATE
     Indication: HYPERSENSITIVITY
     Dosage: 50 UG, 2X/DAY (1 SPRAY TO EACH NOSTRILS BID (TWICE A DAY) )
     Route: 045
     Dates: start: 20190511
  29. LIPITOR [Concomitant]
     Active Substance: ATORVASTATIN CALCIUM
     Indication: HYPERLIPIDAEMIA
     Dosage: 40 MG, 1X/DAY (40 MG 1 TAB PO QHS (EVERY NIGHT) )
     Route: 048
     Dates: start: 20190511

REACTIONS (8)
  - Condition aggravated [Not Recovered/Not Resolved]
  - Off label use [Not Recovered/Not Resolved]
  - Product dose omission [Not Recovered/Not Resolved]
  - Muscle spasms [Not Recovered/Not Resolved]
  - Pain [Not Recovered/Not Resolved]
  - Product use in unapproved indication [Not Recovered/Not Resolved]
  - Vulvovaginal burning sensation [Not Recovered/Not Resolved]
  - Infection [Not Recovered/Not Resolved]

NARRATIVE: CASE EVENT DATE: 201801
